FAERS Safety Report 24267875 (Version 1)
Quarter: 2024Q3

REPORT INFORMATION
  Report Type: Spontaneous
  Country: GB (occurrence: GB)
  Receive Date: 20240830
  Receipt Date: 20240830
  Transmission Date: 20241017
  Serious: Yes (Other)
  Sender: ACCORD
  Company Number: None

PATIENT
  Age: 71 Year
  Sex: Female
  Weight: 60 kg

DRUGS (18)
  1. AMITRIPTYLINE [Suspect]
     Active Substance: AMITRIPTYLINE
     Indication: Product used for unknown indication
     Dosage: 1-2 AT NIGHT?STRENGTH: 10 MG
     Dates: start: 20240722
  2. JUZO SOFT CLASS 2 (23-32MMHG) [Concomitant]
     Dosage: USE AS DIRECTED
     Dates: start: 20240418
  3. IRBESARTAN [Concomitant]
     Active Substance: IRBESARTAN
     Dosage: TAKE ONE ONCE DAILY
     Dates: start: 20240418
  4. CLONAZEPAM [Concomitant]
     Active Substance: CLONAZEPAM
     Dosage: ONE TO BE TAKEN AT NIGHT
     Dates: start: 20240418
  5. ATENOLOL [Concomitant]
     Active Substance: ATENOLOL
     Dosage: TAKE ONE DAILY
     Dates: start: 20240418
  6. ATORVASTATIN [Concomitant]
     Active Substance: ATORVASTATIN
     Dosage: ONE TO BE TAKEN EACH NIGHT
     Dates: start: 20240418
  7. BENDROFLUMETHIAZIDE [Concomitant]
     Active Substance: BENDROFLUMETHIAZIDE
     Dosage: ONE TO BE TAKEN EACH MORNING
     Dates: start: 20240418
  8. CALCIUM CARBONATE\CHOLECALCIFEROL [Concomitant]
     Active Substance: CALCIUM CARBONATE\CHOLECALCIFEROL
     Dosage: TAKE ONE DAILY
     Dates: start: 20240418
  9. DERMOL [Concomitant]
     Active Substance: BENZALKONIUM CHLORIDE\CHLORHEXIDINE HYDROCHLORIDE\ISOPROPYL MYRISTATE\PARAFFIN
     Dosage: APPLY TO SKIN OR USE AS A SOAP SUBSTITUTE
     Dates: start: 20240418
  10. ISOPROPYL MYRISTATE\MINERAL OIL [Concomitant]
     Active Substance: ISOPROPYL MYRISTATE\MINERAL OIL
     Dosage: TO BE USED WHEN REQUIRED
     Dates: start: 20240418
  11. MINERAL OIL\PARAFFIN [Concomitant]
     Active Substance: MINERAL OIL\PARAFFIN
     Dosage: APPLY TO AFFECTED AREA AS REQUIRED.
     Dates: start: 20240418
  12. EZETIMIBE [Concomitant]
     Active Substance: EZETIMIBE
     Dosage: ONE TO BE TAKEN DAILY AS ADVISED BY RENAL UNIT
     Dates: start: 20240418
  13. HYALURONATE SODIUM [Concomitant]
     Active Substance: HYALURONATE SODIUM
     Dosage: USE AS REQUIRED - ONE DROP BOTH EYES
     Dates: start: 20240418
  14. BUTYLSCOPOLAMINE BROMIDE [Concomitant]
     Active Substance: BUTYLSCOPOLAMINE BROMIDE
     Dosage: ONE TABLETS TO BE TAKEN 3 TIMES A DAY IF REQUIRED
     Dates: start: 20240418
  15. LANSOPRAZOLE [Concomitant]
     Active Substance: LANSOPRAZOLE
     Dosage: ONE TO BE TAKEN EACH MORNING
     Dates: start: 20240418
  16. LOPERAMIDE [Concomitant]
     Active Substance: LOPERAMIDE
     Dosage: TWO TWICE A DAY
     Dates: start: 20240418
  17. PIROXICAM [Concomitant]
     Active Substance: PIROXICAM
     Dosage: BD
     Dates: start: 20240418
  18. SODIUM ALGINATE [Concomitant]
     Active Substance: SODIUM ALGINATE
     Dosage: 5ML - 10ML 4 TIMES/DAY
     Dates: start: 20240418

REACTIONS (3)
  - Nocturia [Unknown]
  - Eczema [Recovered/Resolved]
  - Abnormal loss of weight [Unknown]
